FAERS Safety Report 6472259-0 (Version None)
Quarter: 2009Q4

REPORT INFORMATION
  Report Type: 
  Country: None (occurrence: None)
  Receive Date: 20091203
  Receipt Date: 20091123
  Transmission Date: 20100525
  Serious: Yes (Other)
  Sender: FDA-Public Use
  Company Number: IT-GENENTECH-290843

PATIENT
  Sex: Male

DRUGS (5)
  1. AVASTIN [Suspect]
     Indication: METASTASES TO LUNG
     Dosage: 7.5 MG/KG, Q3W
     Route: 065
     Dates: start: 20080701, end: 20090901
  2. ZOMETA [Suspect]
     Indication: METASTASES TO LUNG
     Dosage: 3 MG, UNK
     Route: 042
     Dates: start: 20080701, end: 20090501
  3. GEMCITABINE [Concomitant]
     Indication: DRUG USE FOR UNKNOWN INDICATION
     Dosage: UNK
  4. CISPLATIN [Concomitant]
     Indication: DRUG USE FOR UNKNOWN INDICATION
     Dosage: UNK
  5. TARCEVA [Concomitant]
     Indication: DRUG USE FOR UNKNOWN INDICATION
     Dosage: UNK
     Dates: start: 20090901

REACTIONS (1)
  - OSTEONECROSIS [None]
